FAERS Safety Report 5867298-4 (Version None)
Quarter: 2008Q3

REPORT INFORMATION
  Report Type: 
  Country: None (occurrence: None)
  Receive Date: 20080829
  Receipt Date: 20080829
  Transmission Date: 20090109
  Serious: Yes (Hospitalization)
  Sender: FDA-Public Use
  Company Number: None

PATIENT
  Sex: Female
  Weight: 41.8 kg

DRUGS (13)
  1. CARBOPLATIN [Suspect]
     Dosage: 696MG
     Dates: end: 20080724
  2. PACLITAXEL [Suspect]
     Dosage: 178 MG
     Dates: end: 20080724
  3. ACTONEL [Concomitant]
  4. ASPIRIN [Concomitant]
  5. CARTIA XT [Concomitant]
  6. COLACE [Concomitant]
  7. COMPAZINE [Concomitant]
  8. EVISTA [Concomitant]
  9. PRILOSEC [Concomitant]
  10. VALTREX [Concomitant]
  11. VICODIN [Concomitant]
  12. XANAX [Concomitant]
  13. ZOCOR [Concomitant]

REACTIONS (15)
  - ANOREXIA [None]
  - ASTHENIA [None]
  - BLOOD ELECTROLYTES DECREASED [None]
  - CLOSTRIDIUM DIFFICILE COLITIS [None]
  - DIARRHOEA [None]
  - FAILURE TO THRIVE [None]
  - HAEMOGLOBIN DECREASED [None]
  - HYPOPHAGIA [None]
  - ILEUS [None]
  - NAUSEA [None]
  - PAIN [None]
  - PERFORMANCE STATUS DECREASED [None]
  - SMALL INTESTINAL OBSTRUCTION [None]
  - URINARY TRACT INFECTION [None]
  - VOMITING [None]
